FAERS Safety Report 25111170 (Version 1)
Quarter: 2025Q1

REPORT INFORMATION
  Report Type: Spontaneous
  Country: JP (occurrence: JP)
  Receive Date: 20250324
  Receipt Date: 20250324
  Transmission Date: 20250408
  Serious: Yes (Other)
  Sender: GLAXOSMITHKLINE
  Company Number: JP-GSK-JP2025JPN031663

PATIENT

DRUGS (5)
  1. VALTREX [Suspect]
     Active Substance: VALACYCLOVIR HYDROCHLORIDE
     Indication: Herpes zoster
     Dosage: 1000 MG, TID
     Route: 048
     Dates: start: 20250226
  2. MICARDIS [Concomitant]
     Active Substance: TELMISARTAN
  3. AMITIZA [Concomitant]
     Active Substance: LUBIPROSTONE
  4. SOLIFENACIN SUCCINATE [Concomitant]
     Active Substance: SOLIFENACIN SUCCINATE
  5. PANTETHINE [Concomitant]
     Active Substance: PANTETHINE

REACTIONS (14)
  - Acute kidney injury [Not Recovered/Not Resolved]
  - Altered state of consciousness [Recovered/Resolved]
  - Nephropathy toxic [Unknown]
  - Urinary retention [Recovered/Resolved]
  - Feeling abnormal [Unknown]
  - Speech disorder [Unknown]
  - Renal disorder [Unknown]
  - Somnolence [Unknown]
  - Stupor [Unknown]
  - Urine output decreased [Unknown]
  - Toxicity to various agents [Unknown]
  - Inappropriate schedule of product administration [Unknown]
  - Prescribed overdose [Unknown]
  - Off label use [Unknown]

NARRATIVE: CASE EVENT DATE: 20250302
